FAERS Safety Report 4712909-X (Version None)
Quarter: 2005Q3

REPORT INFORMATION
  Report Type: 
  Country: None (occurrence: None)
  Receive Date: 20050713
  Receipt Date: 20050506
  Transmission Date: 20060218
  Serious: No
  Sender: FDA-Public Use
  Company Number: US-GLAXOSMITHKLINE-A0557565A

PATIENT
  Age: 62 Year
  Sex: Male
  Weight: 106.4 kg

DRUGS (4)
  1. BEXXAR [Suspect]
     Indication: NON-HODGKIN'S LYMPHOMA
     Route: 042
     Dates: start: 20050505, end: 20050505
  2. THYROID TAB [Concomitant]
     Dates: start: 20050504
  3. ACETAMINOPHEN [Concomitant]
     Route: 048
  4. BENADRYL [Concomitant]
     Indication: PREMEDICATION

REACTIONS (2)
  - BODY TEMPERATURE INCREASED [None]
  - OXYGEN SATURATION DECREASED [None]
